FAERS Safety Report 4618257-0 (Version None)
Quarter: 2005Q1

REPORT INFORMATION
  Report Type: 
  Country: None (occurrence: None)
  Receive Date: 20050323
  Receipt Date: 20050304
  Transmission Date: 20050727
  Serious: Yes (Other)
  Sender: FDA-Public Use
  Company Number: WAES 0411GBR00273

PATIENT
  Age: 75 Year
  Sex: Male

DRUGS (4)
  1. VIOXX [Suspect]
     Indication: NEOPLASM PROPHYLAXIS
     Dosage: 25 MG/DAILY PO
     Route: 048
     Dates: start: 20040917, end: 20041001
  2. ACETAMINOPHEN [Concomitant]
  3. ASPIRIN [Concomitant]
  4. LANSOPRAZOLE [Concomitant]

REACTIONS (1)
  - SILENT MYOCARDIAL INFARCTION [None]
